FAERS Safety Report 10074784 (Version 1)
Quarter: 2014Q2

REPORT INFORMATION
  Report Type: Spontaneous
  Country: US (occurrence: US)
  Receive Date: 20140414
  Receipt Date: 20140414
  Transmission Date: 20141212
  Serious: No
  Sender: FDA-Public Use
  Company Number: US-BIOGENIDEC-2014BI033557

PATIENT
  Age: 69 Year
  Sex: Female
  Weight: 70 kg

DRUGS (4)
  1. TYSABRI [Suspect]
     Indication: MULTIPLE SCLEROSIS
     Route: 042
  2. GILENYA [Concomitant]
     Indication: MULTIPLE SCLEROSIS
     Dates: start: 20121204
  3. LYRICA [Concomitant]
     Route: 048
  4. VALIUM [Concomitant]
     Indication: ANXIETY
     Route: 048

REACTIONS (4)
  - Back pain [Unknown]
  - Neck pain [Unknown]
  - Headache [Not Recovered/Not Resolved]
  - Drug ineffective [Unknown]
